FAERS Safety Report 4951880-2 (Version None)
Quarter: 2006Q1

REPORT INFORMATION
  Report Type: 
  Country: None (occurrence: None)
  Receive Date: 20060323
  Receipt Date: 20051208
  Transmission Date: 20060701
  Serious: Yes (Hospitalization, Other)
  Sender: FDA-Public Use
  Company Number: US-MERCK-0512USA01568

PATIENT
  Age: 74 Year
  Sex: Male
  Weight: 78 kg

DRUGS (9)
  1. VIOXX [Suspect]
     Indication: ARTHRITIS
     Route: 048
     Dates: start: 19990909, end: 20030101
  2. VIOXX [Suspect]
     Route: 048
     Dates: start: 20031001
  3. ASPIRIN [Concomitant]
     Route: 065
  4. BEXTRA [Concomitant]
     Indication: OSTEOARTHRITIS
     Route: 048
     Dates: start: 20021003
  5. PROVENTIL [Concomitant]
     Indication: PRODUCTIVE COUGH
     Route: 065
  6. METAMUCIL [Concomitant]
     Indication: CONSTIPATION
     Route: 048
  7. VITAMIN E [Concomitant]
     Route: 065
  8. VITAMINS (UNSPECIFIED) [Concomitant]
     Route: 065
  9. HYDROCHLOROTHIAZIDE [Concomitant]
     Indication: HYPERTENSION
     Route: 048
     Dates: start: 20030601

REACTIONS (19)
  - ARTERIOSCLEROSIS CORONARY ARTERY [None]
  - ASTHENIA [None]
  - BLOOD PRESSURE INCREASED [None]
  - CHEST PAIN [None]
  - COUGH [None]
  - GLAUCOMA [None]
  - HYPERLIPIDAEMIA [None]
  - HYPERTENSION [None]
  - HYPOACUSIS [None]
  - INSOMNIA [None]
  - JOINT SWELLING [None]
  - KNEE ARTHROPLASTY [None]
  - MYOCARDIAL INFARCTION [None]
  - NASOPHARYNGITIS [None]
  - OSTEOARTHRITIS [None]
  - OSTEOPENIA [None]
  - ROTATOR CUFF SYNDROME [None]
  - SKIN LESION [None]
  - WHEEZING [None]
